FAERS Safety Report 8831842 (Version 1)
Quarter: 2012Q4

REPORT INFORMATION
  Report Type: 
  Country: BR (occurrence: BR)
  Receive Date: 20121008
  Receipt Date: 20121008
  Transmission Date: 20130627
  Serious: Yes (Death, Hospitalization, Other)
  Sender: FDA-Public Use
  Company Number: BR-ELI_LILLY_AND_COMPANY-BR201210000891

PATIENT
  Sex: Female
  Weight: 50 kg

DRUGS (3)
  1. FORTEO [Suspect]
     Indication: OSTEOPOROSIS
     Dosage: UNK, qd
     Route: 058
     Dates: start: 201206, end: 20120903
  2. GLIBENCLAMIDA [Concomitant]
     Dosage: UNK, tid
     Route: 048
  3. METFORMINA [Concomitant]
     Dosage: 650 mg, tid
     Route: 048

REACTIONS (5)
  - Ketoacidosis [Fatal]
  - Craniocerebral injury [Fatal]
  - Cerebrovascular accident [Unknown]
  - Fall [Unknown]
  - Urinary tract infection [Unknown]
